FAERS Safety Report 26071727 (Version 1)
Quarter: 2025Q4

REPORT INFORMATION
  Report Type: Spontaneous
  Country: US (occurrence: US)
  Receive Date: 20251120
  Receipt Date: 20251120
  Transmission Date: 20260118
  Serious: Yes (Other)
  Sender: NOVO NORDISK
  Company Number: US-NOVOPROD-665313

PATIENT
  Age: 74 Year
  Sex: Female

DRUGS (3)
  1. TRESIBA [Suspect]
     Active Substance: INSULIN DEGLUDEC
     Indication: Type 2 diabetes mellitus
     Dosage: 40 IU
     Route: 058
     Dates: start: 201904
  2. TRESIBA [Suspect]
     Active Substance: INSULIN DEGLUDEC
     Dosage: 40 IU
     Route: 058
     Dates: start: 201904
  3. HUMALOG MIX75/25 [Concomitant]
     Active Substance: INSULIN LISPRO
     Indication: Type 2 diabetes mellitus
     Dosage: 25 IU, BID
     Route: 058
     Dates: start: 201904

REACTIONS (6)
  - White blood cell count decreased [Unknown]
  - Platelet count decreased [Unknown]
  - Nausea [Unknown]
  - Glycosylated haemoglobin increased [Not Recovered/Not Resolved]
  - Nasopharyngitis [Recovered/Resolved]
  - Dehydration [Recovered/Resolved]

NARRATIVE: CASE EVENT DATE: 20190401
